FAERS Safety Report 4946480-4 (Version None)
Quarter: 2006Q1

REPORT INFORMATION
  Report Type: 
  Country: None (occurrence: None)
  Receive Date: 20060317
  Receipt Date: 20041215
  Transmission Date: 20060701
  Serious: Yes (Other)
  Sender: FDA-Public Use
  Company Number: PHBS2004DK16958

PATIENT
  Age: 76 Year
  Sex: Male

DRUGS (4)
  1. ZOMETA [Suspect]
     Indication: MULTIPLE MYELOMA
     Dosage: 4 MG, Q4W
     Route: 042
     Dates: start: 20021211
  2. PREDNISONE [Concomitant]
     Dosage: UNK, UNK
     Dates: start: 20020801, end: 20031101
  3. ALKERAN [Concomitant]
     Dosage: UNK, UNK
     Dates: start: 20020801, end: 20031101
  4. THALIDOMID [Concomitant]
     Dates: start: 20030701, end: 20041001

REACTIONS (6)
  - ABSCESS JAW [None]
  - BONE DISORDER [None]
  - FISTULA [None]
  - OSTEONECROSIS [None]
  - PAIN IN JAW [None]
  - TOOTH DISORDER [None]
